FAERS Safety Report 20040577 (Version 1)
Quarter: 2021Q4

REPORT INFORMATION
  Report Type: Spontaneous
  Country: US (occurrence: None)
  Receive Date: 20211107
  Receipt Date: 20211107
  Transmission Date: 20220303
  Serious: Yes (Other)
  Sender: FDA-Public Use
  Company Number: None

PATIENT
  Age: 63 Year
  Sex: Female
  Weight: 72 kg

DRUGS (3)
  1. IODINE [Suspect]
     Active Substance: IODINE
     Indication: Computerised tomogram
     Dosage: OTHER QUANTITY : 1 INJECTION(S);?OTHER FREQUENCY : ONCE FOR PROCEDURE;?
     Route: 042
     Dates: start: 20211105, end: 20211105
  2. VITAMIN D3 [Concomitant]
     Active Substance: CHOLECALCIFEROL
  3. MATRICARIA RECUTITA [Concomitant]
     Active Substance: MATRICARIA RECUTITA

REACTIONS (5)
  - Swelling face [None]
  - Palpitations [None]
  - Dyspnoea [None]
  - Pruritus [None]
  - Rash [None]

NARRATIVE: CASE EVENT DATE: 20211105
